FAERS Safety Report 8975072 (Version 1)
Quarter: 2012Q4

REPORT INFORMATION
  Report Type: 
  Country: MX (occurrence: MX)
  Receive Date: 20121219
  Receipt Date: 20121219
  Transmission Date: 20130627
  Serious: Yes (Hospitalization, Other)
  Sender: FDA-Public Use
  Company Number: PHHY2012MX116678

PATIENT
  Age: 66 Year
  Sex: Female

DRUGS (5)
  1. CO-DIOVAN [Suspect]
     Indication: HYPERTENSION
     Dosage: 1 DF daily
     Route: 048
  2. LEXAPRO [Concomitant]
     Indication: INSOMNIA
     Dosage: 1 DF daily
  3. RIVOTRIL [Concomitant]
     Indication: INSOMNIA
     Dosage: 7 drops daily
  4. EVIPRESS [Concomitant]
     Indication: HYPERTENSION
     Dosage: 1.5 DF daily
  5. METOPROLOL [Concomitant]
     Indication: HYPERTENSION
     Dosage: 1 tablet daily

REACTIONS (3)
  - Angina pectoris [Recovered/Resolved]
  - Chest pain [Recovered/Resolved]
  - Arterial occlusive disease [Recovered/Resolved]
